FAERS Safety Report 8008867-5 (Version None)
Quarter: 2011Q4

REPORT INFORMATION
  Report Type: 
  Country: None (occurrence: None)
  Receive Date: 20111227
  Receipt Date: 20111219
  Transmission Date: 20120403
  Serious: Yes (Hospitalization, Other)
  Sender: FDA-Public Use
  Company Number: IE-B.I. PHARMACEUTICALS,INC./RIDGEFIELD-2011-EU-01189GD

PATIENT
  Age: 60 Year
  Sex: Male

DRUGS (1)
  1. MELOXICAM [Suspect]
     Indication: OSTEOARTHRITIS

REACTIONS (11)
  - MAJOR DEPRESSION [None]
  - AGGRESSION [None]
  - HOMICIDAL IDEATION [None]
  - SLEEP DISORDER [None]
  - RASH ERYTHEMATOUS [None]
  - SUICIDAL IDEATION [None]
  - SOMNOLENCE [None]
  - THERMAL BURN [None]
  - INTENTIONAL SELF-INJURY [None]
  - APPETITE DISORDER [None]
  - BLOOD PRESSURE INCREASED [None]
